FAERS Safety Report 13588543 (Version 1)
Quarter: 2017Q2

REPORT INFORMATION
  Report Type: Spontaneous
  Country: FR (occurrence: FR)
  Receive Date: 20170529
  Receipt Date: 20170529
  Transmission Date: 20170830
  Serious: Yes (Hospitalization)
  Sender: FDA-Public Use
  Company Number: FR-BAXTER-2017BAX021541

PATIENT
  Age: 26 Day
  Sex: Female
  Weight: 3.76 kg

DRUGS (1)
  1. SOLUTION INJECTABLE DE GLUCOSE A 10 % BAXTER, SOLUTION POUR PERFUSION [Suspect]
     Active Substance: DEXTROSE
     Indication: FLUID REPLACEMENT
     Route: 042
     Dates: start: 20170202, end: 20170205

REACTIONS (2)
  - Infusion site necrosis [Recovered/Resolved with Sequelae]
  - Infusion site extravasation [Recovered/Resolved]

NARRATIVE: CASE EVENT DATE: 20170205
